FAERS Safety Report 25587266 (Version 1)
Quarter: 2025Q3

REPORT INFORMATION
  Report Type: Spontaneous
  Country: US (occurrence: US)
  Receive Date: 20250721
  Receipt Date: 20250721
  Transmission Date: 20251020
  Serious: Yes (Hospitalization)
  Sender: AMGEN
  Company Number: US-AMGEN-USASP2025134909

PATIENT
  Age: 57 Year
  Sex: Male

DRUGS (5)
  1. PREDNISONE [Suspect]
     Active Substance: PREDNISONE
     Indication: Immunosuppressant drug therapy
     Dosage: 5 MILLIGRAM, QD
     Route: 065
  2. RITUXIMAB [Suspect]
     Active Substance: RITUXIMAB
     Indication: Product used for unknown indication
     Route: 065
  3. METHYLPREDNISOLONE [Concomitant]
     Active Substance: METHYLPREDNISOLONE
     Route: 040
  4. METHOTREXATE [Concomitant]
     Active Substance: METHOTREXATE
  5. MYCOPHENOLATE MOFETIL [Concomitant]
     Active Substance: MYCOPHENOLATE MOFETIL

REACTIONS (10)
  - Leukopenia [Unknown]
  - Anaemia macrocytic [Unknown]
  - Diarrhoea [Unknown]
  - Weight decreased [Unknown]
  - Hypophagia [Unknown]
  - Thrombotic microangiopathy [Not Recovered/Not Resolved]
  - Heart transplant rejection [Not Recovered/Not Resolved]
  - Infection [Unknown]
  - Hypertensive urgency [Unknown]
  - Renal impairment [Not Recovered/Not Resolved]
